FAERS Safety Report 8298769-1 (Version None)
Quarter: 2012Q1

REPORT INFORMATION
  Report Type: 
  Country: None (occurrence: None)
  Receive Date: 20120323
  Receipt Date: 20090202
  Transmission Date: 20120608
  Serious: Yes (Other)
  Sender: FDA-Public Use
  Company Number: PHEH2008US11139

PATIENT
  Sex: Female

DRUGS (1)
  1. TOBI [Suspect]
     Dates: start: 20051201

REACTIONS (4)
  - HYPOACUSIS [None]
  - DRUG LEVEL BELOW THERAPEUTIC [None]
  - DEAFNESS [None]
  - TINNITUS [None]
